FAERS Safety Report 5553555-8 (Version None)
Quarter: 2007Q4

REPORT INFORMATION
  Report Type: 
  Country: None (occurrence: None)
  Receive Date: 20071213
  Receipt Date: 20071207
  Transmission Date: 20080405
  Serious: Yes (Other)
  Sender: FDA-Public Use
  Company Number: DE-JNJFOC-20071202389

PATIENT
  Sex: Male

DRUGS (5)
  1. RISPERDAL [Suspect]
     Indication: SUICIDE ATTEMPT
     Route: 048
  2. VALPROATE SODIUM [Suspect]
     Indication: SUICIDE ATTEMPT
     Route: 048
  3. SEROQUEL [Suspect]
     Indication: SUICIDE ATTEMPT
     Route: 048
  4. TAXILAN [Suspect]
     Indication: SUICIDE ATTEMPT
     Route: 048
  5. ZOPICLON [Suspect]
     Indication: SUICIDE ATTEMPT
     Route: 048

REACTIONS (5)
  - FATIGUE [None]
  - INTENTIONAL OVERDOSE [None]
  - MENTAL IMPAIRMENT [None]
  - SOMNOLENCE [None]
  - SUICIDE ATTEMPT [None]
